FAERS Safety Report 5320102-5 (Version None)
Quarter: 2007Q2

REPORT INFORMATION
  Report Type: 
  Country: None (occurrence: None)
  Receive Date: 20070509
  Receipt Date: 20070508
  Transmission Date: 20071010
  Serious: Yes (Other)
  Sender: FDA-Public Use
  Company Number: US-BRISTOL-MYERS SQUIBB COMPANY-13759048

PATIENT
  Sex: Female

DRUGS (1)
  1. ABILIFY [Suspect]

REACTIONS (2)
  - ECTOPIC PREGNANCY [None]
  - ECTOPIC PREGNANCY TERMINATION [None]
